FAERS Safety Report 8621978-6 (Version None)
Quarter: 2012Q3

REPORT INFORMATION
  Report Type: 
  Country: None (occurrence: None)
  Receive Date: 20120822
  Receipt Date: 20120822
  Transmission Date: 20120928
  Serious: No
  Sender: FDA-Public Use
  Company Number: None

PATIENT
  Age: 63 Year
  Sex: Male
  Weight: 106.6 kg

DRUGS (2)
  1. DENOSUMAB [Suspect]
     Indication: PROSTATE CANCER
     Dosage: 120 MG ONCE SQ
     Route: 058
     Dates: start: 20120806, end: 20120806
  2. DENOSUMAB [Suspect]
     Indication: METASTASES TO BONE
     Dosage: 120 MG ONCE SQ
     Route: 058
     Dates: start: 20120806, end: 20120806

REACTIONS (6)
  - DECREASED APPETITE [None]
  - TACHYPNOEA [None]
  - DYSPNOEA [None]
  - HEADACHE [None]
  - HYPOCALCAEMIA [None]
  - ANXIETY [None]
